FAERS Safety Report 24903433 (Version 1)
Quarter: 2025Q1

REPORT INFORMATION
  Report Type: Spontaneous
  Country: AR (occurrence: AR)
  Receive Date: 20250130
  Receipt Date: 20250130
  Transmission Date: 20250409
  Serious: Yes (Hospitalization)
  Sender: BOEHRINGER INGELHEIM
  Company Number: AR-BoehringerIngelheim-2025-BI-004202

PATIENT
  Age: 84 Year
  Sex: Female
  Weight: 76 kg

DRUGS (4)
  1. JARDIANCE [Suspect]
     Active Substance: EMPAGLIFLOZIN
     Indication: Cardiac failure
  2. FUROSEMIDE [Concomitant]
     Active Substance: FUROSEMIDE
  3. FUROSEMIDE [Concomitant]
     Active Substance: FUROSEMIDE
  4. RIVAROXABAN [Concomitant]
     Active Substance: RIVAROXABAN

REACTIONS (6)
  - Cardiovascular disorder [Unknown]
  - Quality of life decreased [Unknown]
  - Loss of personal independence in daily activities [Unknown]
  - Pain [Unknown]
  - Cardiac failure chronic [Not Recovered/Not Resolved]
  - Discomfort [Unknown]
